FAERS Safety Report 4434850-2 (Version None)
Quarter: 2004Q3

REPORT INFORMATION
  Report Type: 
  Country: None (occurrence: None)
  Receive Date: 20040726
  Receipt Date: 20040505
  Transmission Date: 20050211
  Serious: Yes (Other)
  Sender: FDA-Public Use
  Company Number: USA040566798

PATIENT
  Age: 73 Year
  Sex: Female

DRUGS (7)
  1. EVISTA [Suspect]
     Indication: OSTEOPOROSIS
     Dates: start: 19990101
  2. FORTEO [Suspect]
     Indication: OSTEOPOROSIS
     Dates: start: 20040401
  3. ZEBETA [Concomitant]
  4. DIOVAN [Concomitant]
  5. LOTREL [Concomitant]
  6. THYROID TAB [Concomitant]
  7. CALCIUM [Concomitant]

REACTIONS (4)
  - BACK PAIN [None]
  - DIZZINESS [None]
  - EXTRASYSTOLES [None]
  - LUMBAR VERTEBRAL FRACTURE [None]
